FAERS Safety Report 8764950 (Version 1)
Quarter: 2012Q4

REPORT INFORMATION
  Report Type: 
  Country: GB (occurrence: GB)
  Receive Date: 20120903
  Receipt Date: 20120903
  Transmission Date: 20130627
  Serious: Yes (Other)
  Sender: FDA-Public Use
  Company Number: GB-BRISTOL-MYERS SQUIBB COMPANY-16916009

PATIENT
  Sex: Female

DRUGS (3)
  1. WARFARIN SODIUM [Suspect]
     Indication: ANTICOAGULANT THERAPY
     Dosage: 1DF: 6-9mg
  2. ACETYLSALICYLIC ACID [Suspect]
     Indication: ANTICOAGULANT THERAPY
  3. ENOXAPARIN [Suspect]
     Indication: ANTICOAGULANT THERAPY

REACTIONS (4)
  - Left ventricular dysfunction [Unknown]
  - Premature delivery [Unknown]
  - Pregnancy [Recovered/Resolved]
  - Live birth [Unknown]
